FAERS Safety Report 21550023 (Version 2)
Quarter: 2022Q4

REPORT INFORMATION
  Report Type: Report from Study
  Country: US (occurrence: US)
  Receive Date: 20221103
  Receipt Date: 20221107
  Transmission Date: 20230113
  Serious: Yes (Hospitalization)
  Sender: FDA-Public Use
  Company Number: US-JNJFOC-20221053030

PATIENT
  Age: 70 Year
  Sex: Male
  Weight: 86.4 kg

DRUGS (4)
  1. SELEXIPAG [Suspect]
     Active Substance: SELEXIPAG
     Indication: Pulmonary hypertension
     Dosage: UPTRAVI 1600MCG 2 TIMES DAILY
     Route: 048
  2. SELEXIPAG [Suspect]
     Active Substance: SELEXIPAG
     Dosage: UPTRAVI 1200MCG ORALLY 2 TIMES DAILY
     Route: 048
  3. AMBRISENTAN [Concomitant]
     Active Substance: AMBRISENTAN
  4. XARELTO [Concomitant]
     Active Substance: RIVAROXABAN

REACTIONS (8)
  - Presyncope [Unknown]
  - Sensory disturbance [Unknown]
  - Heart rate increased [Unknown]
  - Oxygen saturation decreased [Unknown]
  - Dyspnoea [Unknown]
  - Dry mouth [Unknown]
  - Paraesthesia [Unknown]
  - Feeling drunk [Unknown]

NARRATIVE: CASE EVENT DATE: 20221025
